FAERS Safety Report 9511326 (Version 1)
Quarter: 2013Q1

REPORT INFORMATION
  Report Type: Spontaneous
  Country: US (occurrence: None)
  Receive Date: 20130305
  Receipt Date: 20130305
  Transmission Date: 20140127
  Serious: Yes (Other)
  Sender: FDA-Public Use
  Company Number: 163-21880-12103291

PATIENT
  Age: 62 Year
  Sex: Female

DRUGS (11)
  1. REVLIMID (LENALIDOMIDE) (CAPSULES) [Suspect]
     Indication: PLASMA CELL MYELOMA
     Dosage: 21 IN 28 DAY
     Route: 048
     Dates: start: 20090722
  2. ACYCLOVIR (ACICLOVIR) (TABLETS) [Concomitant]
  3. COUMADIN (WARFARIN SODIUM) (TABLET) [Concomitant]
  4. FENTANYL (FENTANYL) (UNKNOWN) (FENTANYL) [Concomitant]
  5. FISH OIL (FISH OIL) (UNKNOWN) [Concomitant]
  6. GLUCOSAMINE SULFATE (GLUCOSAMINE SULFATE) (UNKNOWN) [Concomitant]
  7. HYDROCORTISONE (HYDROCORTISONE) (UNKNOWN) [Concomitant]
  8. OXYBUTYNIN CHLORIDE (OXYBUTYNIN CHLORIDE) (UNKNOWN) [Concomitant]
  9. TROFURNTOIN (NITROFURANTOIN) (UNKNOWN) [Concomitant]
  10. METAMUCIL (UNKNOWN) [Concomitant]
  11. IMODIUM A-D (LOERAMIDE HYDROCHLORIDE) (UNKNOWN) [Concomitant]

REACTIONS (1)
  - Thrombosis [None]
